FAERS Safety Report 10171282 (Version 1)
Quarter: 2014Q2

REPORT INFORMATION
  Report Type: Spontaneous
  Country: US (occurrence: None)
  Receive Date: 20140513
  Receipt Date: 20140513
  Transmission Date: 20141212
  Serious: Yes (Hospitalization)
  Sender: FDA-Public Use
  Company Number: None

PATIENT
  Age: 63 Year
  Sex: Female
  Weight: 79.83 kg

DRUGS (11)
  1. RITUXAN [Suspect]
     Indication: CHRONIC LYMPHOCYTIC LEUKAEMIA
     Dosage: 700MG?DAY 1 Q28D?IV
     Route: 042
     Dates: start: 20130916, end: 20140120
  2. FLUDARABINE [Suspect]
     Indication: CHRONIC LYMPHOCYTIC LEUKAEMIA
     Dosage: 40MG?D1-5 Q28D?IV
     Route: 042
     Dates: start: 20130916, end: 20140110
  3. ACYCLOVIR [Concomitant]
  4. BACTRIM [Concomitant]
  5. BISOPOROLD HCTZ [Concomitant]
  6. CLARTIN [Concomitant]
  7. HYDROXYCHLOROQUINE SULFATE [Concomitant]
  8. COMPAZINE [Concomitant]
  9. QUINIPRIL [Concomitant]
  10. VICODIN [Concomitant]
  11. VITAMIN D [Concomitant]

REACTIONS (3)
  - Atrial fibrillation [None]
  - Hypertensive emergency [None]
  - Cerebrovascular accident [None]
